FAERS Safety Report 8532498 (Version 6)
Quarter: 2013Q4

REPORT INFORMATION
  Report Type: Report from Study
  Country: JP (occurrence: JP)
  Receive Date: 20120426
  Receipt Date: 20131202
  Transmission Date: 20140711
  Serious: Yes (Hospitalization, Other)
  Sender: FDA-Public Use
  Company Number: JP-VERTEX PHARMACEUTICAL INC.-AE-2012-005675

PATIENT
  Age: 54 Year
  Sex: Female

DRUGS (13)
  1. VX-950 (TELAPREVIR) [Suspect]
     Indication: CHRONIC HEPATITIS C
     Dosage: 2250 MG, QD
     Route: 048
     Dates: start: 20120215, end: 20120221
  2. VX-950 (TELAPREVIR) [Suspect]
     Dosage: 1500 MG, QD
     Route: 048
     Dates: start: 20120222, end: 20120508
  3. REBETOL [Suspect]
     Indication: CHRONIC HEPATITIS C
     Dosage: 400 MG, QD
     Route: 048
     Dates: start: 20120215, end: 20120228
  4. REBETOL [Suspect]
     Dosage: 200 MG, QD
     Route: 048
     Dates: start: 20120229, end: 20120612
  5. REBETOL [Suspect]
     Dosage: 400 MG, QD
     Route: 048
     Dates: start: 20120613, end: 20120619
  6. REBETOL [Suspect]
     Dosage: 600 MG, QD
     Route: 048
     Dates: start: 20120620, end: 20120731
  7. PEGINTRON [Suspect]
     Indication: CHRONIC HEPATITIS C
     Dosage: 1.5 ?G/KG, QW
     Route: 058
     Dates: start: 20120215, end: 20120725
  8. URSODEOXYCHOLIC ACID [Concomitant]
     Dosage: 300 MG, QD
     Route: 048
  9. OMEPRAL [Concomitant]
     Dosage: 10 MG, QD
     Route: 048
  10. JANUVIA [Concomitant]
     Dosage: 50 MG, QD
     Route: 048
  11. LOXONIN [Concomitant]
     Dosage: 360 MG, QD, PRN
     Route: 048
     Dates: start: 20120215
  12. LOXONIN [Concomitant]
     Dosage: 180 MG, QD, PRN
     Route: 048
  13. LOXONIN [Concomitant]
     Dosage: 180 MG, QD
     Route: 048
     Dates: end: 20120516

REACTIONS (5)
  - Anxiety disorder [Recovered/Resolved]
  - Insomnia [Recovered/Resolved]
  - Decreased appetite [Recovered/Resolved]
  - Nausea [Recovered/Resolved]
  - Haemoglobin decreased [Recovered/Resolved]
